FAERS Safety Report 7200833-2 (Version None)
Quarter: 2010Q4

REPORT INFORMATION
  Report Type: 
  Country: None (occurrence: None)
  Receive Date: 20101228
  Receipt Date: 20101227
  Transmission Date: 20110411
  Serious: Yes (Hospitalization, Other)
  Sender: FDA-Public Use
  Company Number: TW-PFIZER INC-2010172129

PATIENT
  Sex: Female

DRUGS (5)
  1. GEODON [Suspect]
     Indication: SCHIZOPHRENIA
     Dosage: 40 MG, 1X/DAY
     Route: 048
     Dates: end: 20101101
  2. GEODON [Suspect]
     Dosage: 40 MG, 2X/DAY
     Route: 048
     Dates: start: 20101101, end: 20101201
  3. GEODON [Suspect]
     Dosage: 40 MG, 1X/DAY
     Route: 048
     Dates: start: 20101201
  4. AKINETON [Concomitant]
     Dosage: UNK
  5. PROZAC [Concomitant]
     Dosage: UNK

REACTIONS (6)
  - AMNESIA [None]
  - DISEASE PROGRESSION [None]
  - INSOMNIA [None]
  - TREMOR [None]
  - VISION BLURRED [None]
  - WEIGHT INCREASED [None]
